FAERS Safety Report 10618373 (Version 1)
Quarter: 2014Q4

REPORT INFORMATION
  Report Type: Spontaneous
  Country: US (occurrence: US)
  Receive Date: 20141202
  Receipt Date: 20141202
  Transmission Date: 20150529
  Serious: No
  Sender: FDA-Public Use
  Company Number: US-TEVA-445020USA

PATIENT
  Sex: Male

DRUGS (1)
  1. AZITHROMYCIN [Suspect]
     Active Substance: AZITHROMYCIN ANHYDROUS
     Dosage: 200/5ML
     Route: 048

REACTIONS (4)
  - Retching [Unknown]
  - Product quality issue [Unknown]
  - Vomiting [Unknown]
  - Dysgeusia [Unknown]
